FAERS Safety Report 6947386-1 (Version None)
Quarter: 2010Q3

REPORT INFORMATION
  Report Type: 
  Country: None (occurrence: None)
  Receive Date: 20100827
  Receipt Date: 20090908
  Transmission Date: 20110219
  Serious: No
  Sender: FDA-Public Use
  Company Number: US-ABBOTT-09P-163-0596836-00

PATIENT
  Sex: Female
  Weight: 114.41 kg

DRUGS (12)
  1. NIASPAN [Suspect]
     Indication: BLOOD CHOLESTEROL INCREASED
     Dates: start: 20090810
  2. COUMADIN [Concomitant]
     Indication: HEART VALVE REPLACEMENT
  3. GLIPIZIDE [Concomitant]
     Indication: DIABETES MELLITUS
  4. LASIX [Concomitant]
     Indication: CARDIAC FAILURE CONGESTIVE
  5. CALCIUM W/VITAMIN D [Concomitant]
     Indication: MINERAL SUPPLEMENTATION
     Dosage: DAILY
  6. OSCAL [Concomitant]
     Indication: MINERAL SUPPLEMENTATION
  7. VYTORIN [Concomitant]
     Indication: BLOOD CHOLESTEROL INCREASED
  8. COLACE [Concomitant]
     Indication: CONSTIPATION
  9. IRON [Concomitant]
     Indication: ANAEMIA
  10. LANOXIN [Concomitant]
     Indication: CARDIAC FAILURE CONGESTIVE
  11. FOLIC ACID [Concomitant]
     Indication: VITAMIN SUPPLEMENTATION
  12. SYNTHROID [Concomitant]
     Indication: HYPOTHYROIDISM

REACTIONS (3)
  - HEADACHE [None]
  - HYPERHIDROSIS [None]
  - PRURITUS [None]
